FAERS Safety Report 6631698-5 (Version None)
Quarter: 2010Q1

REPORT INFORMATION
  Report Type: 
  Country: None (occurrence: None)
  Receive Date: 20100312
  Receipt Date: 20100303
  Transmission Date: 20100710
  Serious: Yes (Hospitalization, Other)
  Sender: FDA-Public Use
  Company Number: PHHY2010BR13189

PATIENT
  Sex: Male

DRUGS (3)
  1. EXELON [Suspect]
     Dosage: 4.6 MG, QD
     Route: 062
     Dates: start: 20100220
  2. PROLOPA [Concomitant]
     Indication: PARKINSON'S DISEASE
     Dosage: 1 DF, QID
     Route: 048
  3. HYDREA [Concomitant]
     Indication: MYELOPROLIFERATIVE DISORDER
     Dosage: 10 DAYS ON, 14 DAYS OFF

REACTIONS (7)
  - ABDOMINAL DISTENSION [None]
  - CHILLS [None]
  - DIARRHOEA [None]
  - PNEUMONIA ASPIRATION [None]
  - PYREXIA [None]
  - VOMITING [None]
  - WHITE BLOOD CELL COUNT INCREASED [None]
